FAERS Safety Report 13836633 (Version 1)
Quarter: 2017Q3

REPORT INFORMATION
  Report Type: Spontaneous
  Country: US (occurrence: US)
  Receive Date: 20170804
  Receipt Date: 20170804
  Transmission Date: 20171127
  Serious: Yes (Other)
  Sender: FDA-Public Use
  Company Number: US-ROCHE-1071527

PATIENT
  Age: 56 Year
  Sex: Female
  Weight: 63.56 kg

DRUGS (1)
  1. BONIVA [Suspect]
     Active Substance: IBANDRONATE SODIUM
     Indication: OSTEOPOROSIS
     Route: 048
     Dates: start: 200809, end: 201201

REACTIONS (2)
  - Dysphagia [Recovering/Resolving]
  - Oesophageal stenosis [Recovering/Resolving]

NARRATIVE: CASE EVENT DATE: 201202
